FAERS Safety Report 6254359-3 (Version None)
Quarter: 2009Q3

REPORT INFORMATION
  Report Type: 
  Country: None (occurrence: None)
  Receive Date: 20090702
  Receipt Date: 20090619
  Transmission Date: 20100115
  Serious: Yes (Hospitalization, Disabling)
  Sender: FDA-Public Use
  Company Number: NO-BIOGENIDEC-2009BI019828

PATIENT
  Age: 56 Year
  Sex: Male
  Weight: 70 kg

DRUGS (7)
  1. AVONEX [Suspect]
     Indication: RELAPSING-REMITTING MULTIPLE SCLEROSIS
     Route: 030
     Dates: start: 20070219
  2. SIMVASTATIN - SIMCOMBIN [Concomitant]
     Indication: RELAPSING-REMITTING MULTIPLE SCLEROSIS
     Route: 048
     Dates: start: 20070521
  3. ZOPICLONE [Concomitant]
     Indication: INSOMNIA
     Route: 048
  4. MODAFINIL [Concomitant]
     Indication: FATIGUE
     Route: 048
     Dates: start: 20050101
  5. TEGRETOL [Concomitant]
     Indication: NEURALGIA
     Route: 048
     Dates: start: 20071215
  6. VOLTAREN [Concomitant]
     Indication: PAIN
     Route: 048
     Dates: start: 20080911
  7. KENTERA [Concomitant]
     Indication: DRUG USE FOR UNKNOWN INDICATION
     Route: 003
     Dates: start: 20080310

REACTIONS (4)
  - CLUSTER HEADACHE [None]
  - EAR INFECTION [None]
  - GASTROENTERITIS CLOSTRIDIAL [None]
  - MASTOIDITIS [None]
